FAERS Safety Report 13944309 (Version 1)
Quarter: 2017Q3

REPORT INFORMATION
  Report Type: Spontaneous
  Country: US (occurrence: US)
  Receive Date: 20170907
  Receipt Date: 20170907
  Transmission Date: 20171128
  Serious: No
  Sender: FDA-Public Use
  Company Number: PHHY2017US129555

PATIENT
  Sex: Male

DRUGS (1)
  1. ZADITOR [Suspect]
     Active Substance: KETOTIFEN FUMARATE
     Indication: DRUG HYPERSENSITIVITY
     Dosage: TRIPLE UP FOR 3 TO 4 DAYS
     Route: 047

REACTIONS (1)
  - Incorrect dose administered [Unknown]
